FAERS Safety Report 11728552 (Version 1)
Quarter: 2015Q4

REPORT INFORMATION
  Report Type: Other
  Country: CA (occurrence: CA)
  Receive Date: 20151112
  Receipt Date: 20151112
  Transmission Date: 20160304
  Serious: Yes (Other)
  Sender: FDA-Public Use
  Company Number: CA-APOTEX-2015AP014167

PATIENT

DRUGS (1)
  1. APO-FLUCONAZOLE-150 [Suspect]
     Active Substance: FLUCONAZOLE
     Indication: FUNGAL INFECTION
     Dosage: 1 DF, UNK
     Route: 048

REACTIONS (4)
  - Lip swelling [Unknown]
  - Paraesthesia oral [Unknown]
  - Angioedema [Unknown]
  - Paraesthesia [Unknown]
